FAERS Safety Report 12714804 (Version 2)
Quarter: 2016Q3

REPORT INFORMATION
  Report Type: Spontaneous
  Country: JP (occurrence: JP)
  Receive Date: 20160905
  Receipt Date: 20160914
  Transmission Date: 20161109
  Serious: Yes (Hospitalization, Other)
  Sender: FDA-Public Use
  Company Number: JP-VIFOR (INTERNATIONAL) INC.-VIT-2016-04773

PATIENT
  Age: 68 Year
  Sex: Male
  Weight: 71 kg

DRUGS (16)
  1. MIRCERA [Suspect]
     Active Substance: METHOXY POLYETHYLENE GLYCOL-EPOETIN BETA
     Route: 058
     Dates: start: 20150902, end: 2015
  2. DIART [Concomitant]
     Active Substance: AZOSEMIDE
     Dosage: DOSE INTERVAL UNCERTAINTY (30 MG)
     Route: 048
  3. MIRCERA [Suspect]
     Active Substance: METHOXY POLYETHYLENE GLYCOL-EPOETIN BETA
     Route: 058
     Dates: start: 20151104
  4. MICARDIS [Concomitant]
     Active Substance: TELMISARTAN
     Route: 048
     Dates: start: 20120309
  5. LANIRAPID [Concomitant]
     Active Substance: METILDIGOXIN
     Dosage: 0.25 MG ADDICTION
     Route: 048
     Dates: start: 20160511
  6. MIRCERA [Suspect]
     Active Substance: METHOXY POLYETHYLENE GLYCOL-EPOETIN BETA
     Indication: NEPHROGENIC ANAEMIA
     Route: 058
     Dates: start: 20141212
  7. MIRCERA [Suspect]
     Active Substance: METHOXY POLYETHYLENE GLYCOL-EPOETIN BETA
     Route: 058
     Dates: start: 20150513, end: 2015
  8. DIART [Concomitant]
     Active Substance: AZOSEMIDE
     Route: 048
     Dates: start: 20130313
  9. DIART [Concomitant]
     Active Substance: AZOSEMIDE
     Dosage: DOSE INTERVAL UNCERTAINTY (60 MG)
     Route: 048
     Dates: start: 20160511
  10. MAINTATE [Concomitant]
     Active Substance: BISOPROLOL FUMARATE
     Route: 048
  11. LANIRAPID [Concomitant]
     Active Substance: METILDIGOXIN
     Route: 048
     Dates: start: 20160501
  12. MIRCERA [Suspect]
     Active Substance: METHOXY POLYETHYLENE GLYCOL-EPOETIN BETA
     Route: 058
     Dates: start: 20150701, end: 2015
  13. FEBURIC [Concomitant]
     Active Substance: FEBUXOSTAT
     Route: 048
     Dates: start: 20120727
  14. SPIRONOLACTONE. [Concomitant]
     Active Substance: SPIRONOLACTONE
     Route: 048
  15. WARFARIN [Concomitant]
     Active Substance: WARFARIN
     Route: 048
  16. SENNOSIDE A+B [Concomitant]
     Active Substance: SENNOSIDES A AND B
     Dosage: UNCERTAIN
     Route: 048

REACTIONS (9)
  - Marrow hyperplasia [Unknown]
  - Nephrogenic anaemia [Unknown]
  - Dyspnoea [Recovering/Resolving]
  - Therapeutic response decreased [Unknown]
  - Anaemia [Recovering/Resolving]
  - Neutrophil count decreased [Unknown]
  - Myelodysplastic syndrome [Unknown]
  - Aplastic anaemia [Unknown]
  - Platelet count decreased [Unknown]

NARRATIVE: CASE EVENT DATE: 2016
